FAERS Safety Report 22590944 (Version 1)
Quarter: 2023Q2

REPORT INFORMATION
  Report Type: Spontaneous
  Country: US (occurrence: None)
  Receive Date: 20230612
  Receipt Date: 20230612
  Transmission Date: 20230722
  Serious: Yes (Other)
  Sender: FDA-Public Use
  Company Number: 2023A135728

PATIENT
  Sex: Female

DRUGS (3)
  1. FASLODEX [Suspect]
     Active Substance: FULVESTRANT
     Indication: Breast cancer female
     Dosage: TAKE ONE TABLET BY MOUTH ONCE DAILY ON DAYS 1-21, THEN STOP FOR 7 DAYS, REPEAT
     Route: 048
  2. ARIMIDEX [Suspect]
     Active Substance: ANASTROZOLE
     Route: 048
  3. IBRANCE [Suspect]
     Active Substance: PALBOCICLIB
     Indication: Breast cancer female
     Dosage: TAKE FOR 21 DAYS EVERY 28 DAYS
     Route: 048

REACTIONS (5)
  - Breast cancer recurrent [Unknown]
  - Malignant neoplasm progression [Unknown]
  - Osteolysis [Unknown]
  - Carpal tunnel syndrome [Unknown]
  - Arthralgia [Recovered/Resolved]
